FAERS Safety Report 20019230 (Version 2)
Quarter: 2021Q4

REPORT INFORMATION
  Report Type: Spontaneous
  Country: US (occurrence: US)
  Receive Date: 20211101
  Receipt Date: 20211221
  Transmission Date: 20220303
  Serious: No
  Sender: FDA-Public Use
  Company Number: US-TAKEDA-2021TUS065064

PATIENT
  Sex: Male
  Weight: 81 kg

DRUGS (1)
  1. NINLARO [Suspect]
     Active Substance: IXAZOMIB CITRATE
     Indication: Plasma cell myeloma
     Dosage: 3 MILLIGRAM, 1/WEEK
     Route: 048
     Dates: start: 20210928

REACTIONS (4)
  - Back pain [Unknown]
  - Gait disturbance [Unknown]
  - Dysstasia [Unknown]
  - Insomnia [Unknown]
